FAERS Safety Report 6196067-3 (Version None)
Quarter: 2009Q2

REPORT INFORMATION
  Report Type: 
  Country: None (occurrence: None)
  Receive Date: 20090520
  Receipt Date: 20090511
  Transmission Date: 20091009
  Serious: Yes (Hospitalization)
  Sender: FDA-Public Use
  Company Number: JP-PFIZER INC-2009183430

PATIENT
  Age: 78 Year

DRUGS (6)
  1. VFEND [Suspect]
     Dosage: UNK
     Route: 048
     Dates: start: 20090305, end: 20090310
  2. CARDENALIN [Suspect]
  3. CONIEL [Suspect]
  4. BLOPRESS [Suspect]
  5. SAWACILLIN [Suspect]
  6. TRANSAMIN [Suspect]

REACTIONS (1)
  - CARDIAC FAILURE [None]
